FAERS Safety Report 7481171-X (Version None)
Quarter: 2011Q2

REPORT INFORMATION
  Report Type: 
  Country: None (occurrence: None)
  Receive Date: 20110512
  Receipt Date: 20110512
  Transmission Date: 20111010
  Serious: Yes (Other)
  Sender: FDA-Public Use
  Company Number: None

PATIENT
  Age: 46 Year
  Sex: Female
  Weight: 128.8216 kg

DRUGS (1)
  1. CARISOPRODOL [Suspect]
     Indication: BACK PAIN
     Dosage: 350MG ONCE DAILY
     Dates: start: 20060101, end: 20110301

REACTIONS (7)
  - CONSTIPATION [None]
  - AGITATION [None]
  - CHILLS [None]
  - URINARY INCONTINENCE [None]
  - NERVOUSNESS [None]
  - HYPOAESTHESIA [None]
  - BLADDER DYSFUNCTION [None]
